FAERS Safety Report 4660920-X (Version None)
Quarter: 2005Q2

REPORT INFORMATION
  Report Type: 
  Country: None (occurrence: None)
  Receive Date: 20050511
  Receipt Date: 20050404
  Transmission Date: 20051028
  Serious: Yes (Hospitalization)
  Sender: FDA-Public Use
  Company Number: 1781-140

PATIENT
  Age: 64 Year
  Sex: Female

DRUGS (1)
  1. VENOFER [Suspect]
     Indication: ANAEMIA
     Dosage: 200 MG/200ML NS IV X 2
     Route: 042
     Dates: start: 20050326, end: 20050330

REACTIONS (6)
  - CELLULITIS [None]
  - ERYTHEMA [None]
  - INJECTION SITE EXTRAVASATION [None]
  - OEDEMA PERIPHERAL [None]
  - TENDERNESS [None]
  - THROMBOPHLEBITIS SUPERFICIAL [None]
